FAERS Safety Report 21778601 (Version 1)
Quarter: 2022Q4

REPORT INFORMATION
  Report Type: Spontaneous
  Country: US (occurrence: US)
  Receive Date: 20221226
  Receipt Date: 20221226
  Transmission Date: 20230112
  Serious: No
  Sender: FDA-Public Use
  Company Number: US-MIGRATION_PFIZER-2022BHV003145

PATIENT
  Sex: Male

DRUGS (2)
  1. NURTEC ODT [Suspect]
     Active Substance: RIMEGEPANT SULFATE
     Indication: Migraine prophylaxis
     Dosage: FIRST NURTEC PACKAGE
     Route: 048
     Dates: start: 2022
  2. NURTEC ODT [Suspect]
     Active Substance: RIMEGEPANT SULFATE
     Dosage: SECOND NURTEC PACKAGE
     Route: 048
     Dates: start: 2022

REACTIONS (2)
  - Therapeutic product effect variable [Not Recovered/Not Resolved]
  - Product quality issue [Not Recovered/Not Resolved]
